FAERS Safety Report 14660820 (Version 1)
Quarter: 2018Q1

REPORT INFORMATION
  Report Type: Spontaneous
  Country: US (occurrence: US)
  Receive Date: 20180320
  Receipt Date: 20180320
  Transmission Date: 20180509
  Serious: Yes (Other)
  Sender: FDA-Public Use
  Company Number: US-AKORN PHARMACEUTICALS-2018AKN00231

PATIENT
  Age: 18 Year
  Sex: Male
  Weight: 79.37 kg

DRUGS (1)
  1. MYORISAN [Suspect]
     Active Substance: ISOTRETINOIN
     Indication: ACNE
     Dosage: 30 MG, 1X/DAY
     Dates: start: 20180112

REACTIONS (6)
  - Impulsive behaviour [Recovering/Resolving]
  - Anger [Recovering/Resolving]
  - Off label use [Recovered/Resolved]
  - Irritability [Recovering/Resolving]
  - Anxiety [Recovering/Resolving]
  - Mood altered [Recovering/Resolving]

NARRATIVE: CASE EVENT DATE: 201801
